FAERS Safety Report 17195863 (Version 1)
Quarter: 2019Q4

REPORT INFORMATION
  Report Type: Spontaneous
  Country: GB (occurrence: GB)
  Receive Date: 20191224
  Receipt Date: 20191224
  Transmission Date: 20200122
  Serious: Yes (Hospitalization)
  Sender: FDA-Public Use
  Company Number: GB-TEVA-2019-GB-1156211

PATIENT
  Age: 31 Year
  Sex: Male

DRUGS (2)
  1. EMTRICITABINE [Concomitant]
     Active Substance: EMTRICITABINE
     Indication: PROPHYLAXIS AGAINST HIV INFECTION
     Dosage: 200 MG
  2. TENOFOVIR DISOPROXIL [Suspect]
     Active Substance: TENOFOVIR DISOPROXIL
     Indication: PROPHYLAXIS AGAINST HIV INFECTION
     Dosage: 245 MG
     Route: 048
     Dates: start: 20190517

REACTIONS (2)
  - Fracture [Recovering/Resolving]
  - Osteopenia [Unknown]

NARRATIVE: CASE EVENT DATE: 20190817
